FAERS Safety Report 17919749 (Version 2)
Quarter: 2020Q3

REPORT INFORMATION
  Report Type: Spontaneous
  Country: CA (occurrence: CA)
  Receive Date: 20200619
  Receipt Date: 20200923
  Transmission Date: 20201103
  Serious: Yes (Hospitalization, Other)
  Sender: FDA-Public Use
  Company Number: CA-SAMSUNG BIOEPIS-SB-2020-19559

PATIENT
  Age: 69 Year
  Sex: Male

DRUGS (1)
  1. ETANERCEPT [Suspect]
     Active Substance: ETANERCEPT
     Indication: RHEUMATOID ARTHRITIS
     Route: 058

REACTIONS (7)
  - Tremor [Unknown]
  - Pyrexia [Unknown]
  - Immune system disorder [Unknown]
  - Pain [Unknown]
  - Erythema [Unknown]
  - Pneumonia [Unknown]
  - Immunosuppression [Unknown]
